FAERS Safety Report 22400512 (Version 1)
Quarter: 2023Q2

REPORT INFORMATION
  Report Type: Spontaneous
  Country: US (occurrence: US)
  Receive Date: 20230602
  Receipt Date: 20230602
  Transmission Date: 20230721
  Serious: No
  Sender: FDA-Public Use
  Company Number: US-BAYER-2023A072627

PATIENT
  Sex: Male

DRUGS (1)
  1. NUBEQA [Suspect]
     Active Substance: DAROLUTAMIDE
     Dosage: UNK
     Dates: start: 202303

REACTIONS (5)
  - Nail discolouration [Recovered/Resolved]
  - Skin exfoliation [Recovered/Resolved]
  - Onycholysis [None]
  - Nail discolouration [None]
  - Skin exfoliation [None]

NARRATIVE: CASE EVENT DATE: 20230401
